FAERS Safety Report 5564449-6 (Version None)
Quarter: 2007Q4

REPORT INFORMATION
  Report Type: 
  Country: None (occurrence: None)
  Receive Date: 20071212
  Receipt Date: 20071127
  Transmission Date: 20080405
  Serious: Yes (Other)
  Sender: FDA-Public Use
  Company Number: PAR_01805_2007

PATIENT
  Age: 54 Year
  Sex: Female
  Weight: 82.5547 kg

DRUGS (3)
  1. MEGESTROL ACETATE [Suspect]
     Indication: UTERINE LEIOMYOMA
     Dosage: (40 MG QD, ORAL), (80 MG ORAL), (40 MG QD)
     Route: 048
     Dates: start: 20071001, end: 20071112
  2. MEGESTROL ACETATE [Suspect]
     Indication: UTERINE LEIOMYOMA
     Dosage: (40 MG QD, ORAL), (80 MG ORAL), (40 MG QD)
     Route: 048
     Dates: start: 20070928
  3. MEGESTROL ACETATE [Suspect]
     Indication: UTERINE LEIOMYOMA
     Dosage: (40 MG QD, ORAL), (80 MG ORAL), (40 MG QD)
     Route: 048
     Dates: start: 20071112

REACTIONS (5)
  - CARDIOMYOPATHY [None]
  - CHEST PAIN [None]
  - CORONARY ARTERY DISEASE [None]
  - DYSPNOEA [None]
  - EJECTION FRACTION DECREASED [None]
